FAERS Safety Report 25386436 (Version 1)
Quarter: 2025Q2

REPORT INFORMATION
  Report Type: Spontaneous
  Country: FI (occurrence: FI)
  Receive Date: 20250602
  Receipt Date: 20250602
  Transmission Date: 20250717
  Serious: Yes (Death, Life-Threatening)
  Sender: MYLAN
  Company Number: None

PATIENT
  Age: 72 Year
  Sex: Male

DRUGS (3)
  1. CLOZAPINE [Suspect]
     Active Substance: CLOZAPINE
     Indication: Bipolar disorder
     Dosage: 125 MILLIGRAM, QD (125 MG/DAY)
     Dates: start: 20250401, end: 20250512
  2. VALPROIC ACID [Concomitant]
     Active Substance: VALPROIC ACID
     Indication: Bipolar disorder
     Dosage: UNK UNK, QD (0 - 1200 MG/DAY /0)
     Dates: start: 2019, end: 20250505
  3. RISPERDAL [Concomitant]
     Active Substance: RISPERIDONE
     Indication: Bipolar disorder
     Dosage: UNK UNK, QD (0-2 MG/DAY /0)
     Dates: start: 20240804, end: 20250405

REACTIONS (5)
  - Leukopenia [Fatal]
  - Agranulocytosis [Fatal]
  - Inflammatory marker increased [Fatal]
  - Pyrexia [Fatal]
  - Off label use [Fatal]

NARRATIVE: CASE EVENT DATE: 20250512
